FAERS Safety Report 7941993-5 (Version None)
Quarter: 2011Q4

REPORT INFORMATION
  Report Type: 
  Country: None (occurrence: None)
  Receive Date: 20111128
  Receipt Date: 20111121
  Transmission Date: 20120403
  Serious: Yes (Other)
  Sender: FDA-Public Use
  Company Number: SE-SHIRE-ALL1-2011-04601

PATIENT
  Sex: Male
  Weight: 85 kg

DRUGS (1)
  1. ELAPRASE [Suspect]
     Indication: MUCOPOLYSACCHARIDOSIS II
     Dosage: 42.5 MG, 1X/WEEK
     Route: 041
     Dates: start: 20050215

REACTIONS (1)
  - RHABDOMYOLYSIS [None]
